FAERS Safety Report 7083024-8 (Version None)
Quarter: 2010Q4

REPORT INFORMATION
  Report Type: 
  Country: None (occurrence: None)
  Receive Date: 20101104
  Receipt Date: 20101005
  Transmission Date: 20110411
  Serious: No
  Sender: FDA-Public Use
  Company Number: US-BAYER-201036597NA

PATIENT
  Sex: Female

DRUGS (1)
  1. MIRENA [Suspect]
     Dosage: FREQUENCY: CONTINUOUS
     Route: 015

REACTIONS (6)
  - ABDOMINAL PAIN [None]
  - ACNE [None]
  - DEPRESSION [None]
  - DYSPAREUNIA [None]
  - PROCEDURAL PAIN [None]
  - VAGINITIS BACTERIAL [None]
